FAERS Safety Report 18482327 (Version 1)
Quarter: 2020Q4

REPORT INFORMATION
  Report Type: Spontaneous
  Country: US (occurrence: US)
  Receive Date: 20201109
  Receipt Date: 20201109
  Transmission Date: 20210114
  Serious: No
  Sender: FDA-Public Use
  Company Number: US-FOUNDATIONCONSUMERHC-2020-US-014990

PATIENT
  Age: 17 Year
  Sex: Female
  Weight: 57.15 kg

DRUGS (5)
  1. PLAN B ONE-STEP [Suspect]
     Active Substance: LEVONORGESTREL
     Indication: POST COITAL CONTRACEPTION
     Dosage: 1.5 X 2 DOSES
     Route: 048
     Dates: start: 20200603, end: 20200613
  2. VITAMIN C [Concomitant]
     Active Substance: ASCORBIC ACID
  3. ISOTRETINOIN. [Concomitant]
     Active Substance: ISOTRETINOIN
  4. PROBIOTIC [Concomitant]
     Active Substance: PROBIOTICS NOS
  5. VITAMIN D [Concomitant]
     Active Substance: VITAMIN D NOS

REACTIONS (5)
  - Vaginal haemorrhage [Recovered/Resolved]
  - Product use in unapproved indication [Recovered/Resolved]
  - Menstruation delayed [Not Recovered/Not Resolved]
  - Intentional product misuse [Recovered/Resolved]
  - Inappropriate schedule of product administration [Recovered/Resolved]

NARRATIVE: CASE EVENT DATE: 20200603
